FAERS Safety Report 17739752 (Version 1)
Quarter: 2020Q2

REPORT INFORMATION
  Report Type: Spontaneous
  Country: US (occurrence: US)
  Receive Date: 20200501
  Receipt Date: 20200501
  Transmission Date: 20200714
  Serious: Yes (Other)
  Sender: FDA-Public Use
  Company Number: None

PATIENT
  Age: 4 Year
  Sex: Female
  Weight: 24.4 kg

DRUGS (2)
  1. MEDICAL DEVICES [Suspect]
     Active Substance: DEVICE
  2. MTX (METHOTREXATE) [Suspect]
     Active Substance: METHOTREXATE

REACTIONS (11)
  - Vascular device infection [None]
  - Accidental exposure to product [None]
  - Infection in an immunocompromised host [None]
  - Device connection issue [None]
  - Air embolism [None]
  - Device malfunction [None]
  - Device leakage [None]
  - Product design issue [None]
  - Circumstance or information capable of leading to medication error [None]
  - Incorrect dose administered by device [None]
  - Haemorrhage [None]

NARRATIVE: CASE EVENT DATE: 20200214
